FAERS Safety Report 12887434 (Version 1)
Quarter: 2016Q4

REPORT INFORMATION
  Report Type: Report from Study
  Country: EG (occurrence: EG)
  Receive Date: 20161026
  Receipt Date: 20161026
  Transmission Date: 20170207
  Serious: Yes (Hospitalization)
  Sender: FDA-Public Use
  Company Number: EG-BAUSCH-BL-2016-026260

PATIENT
  Age: 1 Day

DRUGS (2)
  1. DEXAMETHASONE. [Suspect]
     Active Substance: DEXAMETHASONE
     Indication: PRODUCT USED FOR UNKNOWN INDICATION
     Dosage: 4 DOSES OF DEXAMETHASONE 6 MG WERE GIVEN
     Route: 064
  2. PREDNISOLONE. [Suspect]
     Active Substance: PREDNISOLONE
     Indication: PROPHYLAXIS AGAINST RH ISOIMMUNISATION
     Route: 064

REACTIONS (4)
  - Haemolytic anaemia [Unknown]
  - Premature baby [Unknown]
  - Maternal drugs affecting foetus [Unknown]
  - Jaundice neonatal [Unknown]
